FAERS Safety Report 5261915-8 (Version None)
Quarter: 2007Q1

REPORT INFORMATION
  Report Type: 
  Country: None (occurrence: None)
  Receive Date: 20070310
  Receipt Date: 20070228
  Transmission Date: 20070707
  Serious: Yes (Hospitalization, Other)
  Sender: FDA-Public Use
  Company Number: 2006UW23947

PATIENT
  Sex: Female
  Weight: 104.5 kg

DRUGS (4)
  1. SEROQUEL [Suspect]
     Indication: SLEEP DISORDER
     Route: 048
     Dates: start: 20031101, end: 20040701
  2. THORAZINE [Concomitant]
     Route: 048
     Dates: start: 19920101
  3. ZYPREXA [Concomitant]
  4. ZOLOFT [Concomitant]

REACTIONS (4)
  - DIABETES MELLITUS [None]
  - DIABETIC COMA [None]
  - DIABETIC KETOACIDOSIS [None]
  - MENTAL DISORDER [None]
